FAERS Safety Report 25223001 (Version 1)
Quarter: 2025Q2

REPORT INFORMATION
  Report Type: Spontaneous
  Country: US (occurrence: US)
  Receive Date: 20250422
  Receipt Date: 20250422
  Transmission Date: 20250716
  Serious: Yes (Other)
  Sender: EPIC PHARM
  Company Number: US-EPICPHARMA-US-2025EPCLIT00472

PATIENT
  Age: 57 Year
  Sex: Male

DRUGS (3)
  1. CEFTRIAXONE SODIUM [Suspect]
     Active Substance: CEFTRIAXONE SODIUM
     Indication: Osteomyelitis
     Route: 065
  2. VANCOMYCIN [Suspect]
     Active Substance: VANCOMYCIN
     Indication: Osteomyelitis
     Route: 042
  3. METRONIDAZOLE [Suspect]
     Active Substance: METRONIDAZOLE
     Indication: Osteomyelitis
     Route: 065

REACTIONS (3)
  - Cholestatic liver injury [Recovered/Resolved]
  - Drug reaction with eosinophilia and systemic symptoms [Recovered/Resolved]
  - Product use in unapproved indication [Unknown]
